FAERS Safety Report 7186472-0 (Version None)
Quarter: 2010Q4

REPORT INFORMATION
  Report Type: 
  Country: None (occurrence: None)
  Receive Date: 20101222
  Receipt Date: 20101214
  Transmission Date: 20110411
  Serious: Yes (Other)
  Sender: FDA-Public Use
  Company Number: US-PFIZER INC-2010172005

PATIENT
  Sex: Female
  Weight: 74.83 kg

DRUGS (7)
  1. EFFEXOR XR [Suspect]
     Indication: ARTHRITIS
     Dosage: 75 MG, 1X/DAY
     Route: 048
     Dates: start: 20070101, end: 20100101
  2. EFFEXOR XR [Suspect]
     Indication: FIBROMYALGIA
     Dosage: 75 MG, 2X/DAY
  3. CYMBALTA [Suspect]
     Dosage: UNK
  4. WELLBUTRIN [Suspect]
     Dosage: UNK
     Dates: end: 20100101
  5. MIRAPEX [Concomitant]
     Indication: RESTLESS LEGS SYNDROME
     Dosage: 25 MG, 2X/DAY
     Route: 048
  6. REMICADE [Concomitant]
     Indication: ARTHRITIS
     Dosage: UNK, ONCE IN EVERY FOUR WEEKS
  7. HUMIRA [Concomitant]
     Dosage: UNK

REACTIONS (4)
  - AGITATION [None]
  - DEPRESSION [None]
  - DRUG INEFFECTIVE [None]
  - WEIGHT INCREASED [None]
